FAERS Safety Report 18948006 (Version 2)
Quarter: 2021Q1

REPORT INFORMATION
  Report Type: Spontaneous
  Country: US (occurrence: US)
  Receive Date: 20210226
  Receipt Date: 20210331
  Transmission Date: 20210420
  Serious: Yes (Hospitalization)
  Sender: FDA-Public Use
  Company Number: US-VERTEX PHARMACEUTICALS-2021-002914

PATIENT
  Age: 26 Year
  Sex: Female
  Weight: 41 kg

DRUGS (2)
  1. TRIKAFTA [Suspect]
     Active Substance: ELEXACAFTOR\IVACAFTOR\TEZACAFTOR
     Indication: CYSTIC FIBROSIS
     Dosage: ELEXA100MG/TEZA50MG/IVA75MG AND IVA150MG, UNK FREQ
     Route: 048
     Dates: start: 202008, end: 202012
  2. ARIKAYCE [Concomitant]
     Active Substance: AMIKACIN
     Dosage: 590 MG

REACTIONS (6)
  - Weight decreased [Unknown]
  - COVID-19 [Unknown]
  - Hospitalisation [Unknown]
  - Gastrointestinal disorder [Not Recovered/Not Resolved]
  - Emergency care examination [Unknown]
  - Drug ineffective [Unknown]

NARRATIVE: CASE EVENT DATE: 202101
